FAERS Safety Report 7653815-0 (Version None)
Quarter: 2011Q3

REPORT INFORMATION
  Report Type: 
  Country: None (occurrence: None)
  Receive Date: 20110728
  Receipt Date: 20100629
  Transmission Date: 20111222
  Serious: Yes (Other)
  Sender: FDA-Public Use
  Company Number: 2010SP036552

PATIENT
  Age: 43 Year
  Sex: Female

DRUGS (3)
  1. INTRON A [Suspect]
  2. INTRON A [Suspect]
     Indication: LEUKAEMIA
     Dosage: 3 MIU ; 18 MIU;BIW
     Dates: start: 20100201
  3. INTRON A [Suspect]
     Indication: LEUKAEMIA
     Dosage: 3 MIU ; 18 MIU;BIW
     Dates: start: 20000901, end: 20100201

REACTIONS (1)
  - FULL BLOOD COUNT DECREASED [None]
